FAERS Safety Report 10921948 (Version 2)
Quarter: 2015Q1

REPORT INFORMATION
  Report Type: Spontaneous
  Country: US (occurrence: US)
  Receive Date: 20150317
  Receipt Date: 20150331
  Transmission Date: 20150721
  Serious: Yes (Other)
  Sender: FDA-Public Use
  Company Number: US-ROXANE LABORATORIES, INC.-2015-RO-00474RO

PATIENT
  Age: 56 Year
  Sex: Male
  Weight: 101 kg

DRUGS (28)
  1. LAMICTAL [Concomitant]
     Active Substance: LAMOTRIGINE
     Dosage: 200 MG
     Route: 048
     Dates: start: 20150312
  2. LITHIUM CARBONATE. [Suspect]
     Active Substance: LITHIUM CARBONATE
     Route: 065
     Dates: start: 1987
  3. SEROQUEL [Concomitant]
     Active Substance: QUETIAPINE FUMARATE
     Indication: BIPOLAR DISORDER
     Dosage: 400 MG
     Route: 048
  4. INDERAL ER [Concomitant]
     Indication: PERIPHERAL ARTERIAL OCCLUSIVE DISEASE
     Dosage: 60 MG
     Route: 048
     Dates: start: 2009
  5. INDERAL ER [Concomitant]
     Indication: PALPITATIONS
  6. FISH OIL [Concomitant]
     Active Substance: FISH OIL
     Indication: BLOOD CHOLESTEROL
     Route: 065
     Dates: start: 2011
  7. FENOFIBRATE. [Concomitant]
     Active Substance: FENOFIBRATE
     Indication: BLOOD CHOLESTEROL
     Dosage: 160 MG
     Route: 048
     Dates: start: 2006
  8. INDERAL ER [Concomitant]
     Indication: BLOOD PRESSURE
  9. LAMOTRIGINE. [Concomitant]
     Active Substance: LAMOTRIGINE
     Dosage: 100 MG
     Route: 048
  10. FUROSEMIDE. [Concomitant]
     Active Substance: FUROSEMIDE
     Indication: OEDEMA
     Dosage: 20 MG
     Route: 048
     Dates: start: 2011
  11. TIZANIDINE (TIZANIDINE) [Concomitant]
     Active Substance: TIZANIDINE
     Dosage: 4 MG
     Route: 048
     Dates: end: 20141128
  12. SEROQUEL [Concomitant]
     Active Substance: QUETIAPINE FUMARATE
     Indication: AGITATION
     Route: 048
  13. REGUALR INSULIN [Concomitant]
     Route: 050
  14. INDERAL ER [Concomitant]
     Indication: TREMOR
  15. ABILIFY [Concomitant]
     Active Substance: ARIPIPRAZOLE
     Indication: MANIA
     Dosage: 7.5 MG
     Route: 048
     Dates: start: 2012, end: 20150223
  16. ATORVASTATIN [Concomitant]
     Active Substance: ATORVASTATIN
     Indication: BLOOD CHOLESTEROL
     Dosage: 80 MG
     Route: 048
     Dates: start: 2011
  17. ENALAPRIL [Concomitant]
     Active Substance: ENALAPRIL
     Indication: BLOOD PRESSURE
     Dosage: 5 MG
     Route: 048
     Dates: start: 1998
  18. SEROQUEL [Concomitant]
     Active Substance: QUETIAPINE FUMARATE
     Indication: DISTURBANCE IN ATTENTION
  19. KLONOPIN [Concomitant]
     Active Substance: CLONAZEPAM
     Dosage: ONLY BEEN TAKING IT AT SUPPER TIME
     Route: 065
  20. ARTANE [Concomitant]
     Active Substance: TRIHEXYPHENIDYL HYDROCHLORIDE
     Dosage: 1 MG
     Route: 065
     Dates: start: 2013, end: 2014
  21. TRIHEXYPHENIDYL [Concomitant]
     Active Substance: TRIHEXYPHENIDYL
     Dosage: 4 MG
     Route: 048
     Dates: start: 2014
  22. LITHIUM CARBONATE. [Suspect]
     Active Substance: LITHIUM CARBONATE
     Indication: BIPOLAR DISORDER
     Route: 065
     Dates: start: 2011, end: 201412
  23. LITHIUM CARBONATE. [Suspect]
     Active Substance: LITHIUM CARBONATE
     Indication: MANIA
     Dosage: 900 MG
     Route: 065
     Dates: start: 1997
  24. PLAVIX [Concomitant]
     Active Substance: CLOPIDOGREL BISULFATE
     Indication: CARDIAC DISORDER
     Dosage: 75 MG
     Route: 048
     Dates: start: 2012
  25. REGUALR INSULIN [Concomitant]
     Indication: DIABETES MELLITUS
     Route: 065
  26. PROPRANOLOL [Concomitant]
     Active Substance: PROPRANOLOL\PROPRANOLOL HYDROCHLORIDE
     Dosage: 120 MG
     Route: 048
     Dates: end: 20150122
  27. SEROQUEL [Concomitant]
     Active Substance: QUETIAPINE FUMARATE
     Indication: SLEEP DISORDER
  28. OCUVITE [Concomitant]
     Active Substance: VITAMINS
     Indication: EYE DISORDER
     Route: 065

REACTIONS (9)
  - Constipation [Not Recovered/Not Resolved]
  - Renal disorder [Not Recovered/Not Resolved]
  - Glucose urine present [Not Recovered/Not Resolved]
  - Tremor [Unknown]
  - Diabetes mellitus [Not Recovered/Not Resolved]
  - Skin disorder [Not Recovered/Not Resolved]
  - Blood testosterone decreased [Recovered/Resolved]
  - Thyroid disorder [Recovered/Resolved]
  - Vertigo [Unknown]

NARRATIVE: CASE EVENT DATE: 1987
